FAERS Safety Report 6599749-4 (Version None)
Quarter: 2010Q1

REPORT INFORMATION
  Report Type: 
  Country: None (occurrence: None)
  Receive Date: 20100224
  Receipt Date: 20100212
  Transmission Date: 20100710
  Serious: Yes (Hospitalization)
  Sender: FDA-Public Use
  Company Number: PHHY2010US08411

PATIENT
  Sex: Female

DRUGS (1)
  1. GLEEVEC [Suspect]
     Dosage: 100 MG DAILY
     Route: 048
     Dates: start: 20050101

REACTIONS (4)
  - BACK PAIN [None]
  - NAUSEA [None]
  - SPINAL COLUMN STENOSIS [None]
  - VOMITING [None]
